FAERS Safety Report 7937503-9 (Version None)
Quarter: 2011Q4

REPORT INFORMATION
  Report Type: 
  Country: None (occurrence: None)
  Receive Date: 20111123
  Receipt Date: 20111108
  Transmission Date: 20120403
  Serious: Yes (Death)
  Sender: FDA-Public Use
  Company Number: EG-ASTELLAS-2011EU008456

PATIENT
  Sex: Female

DRUGS (2)
  1. TACROLIMUS [Suspect]
     Indication: RENAL TRANSPLANT
     Dosage: UNK
     Route: 065
  2. ALEMTUZUMAB [Suspect]
     Indication: RENAL TRANSPLANT
     Dosage: 30 MG, UNKNOWN/D
     Route: 042

REACTIONS (1)
  - HEPATITIS B [None]
